FAERS Safety Report 5025775-2 (Version None)
Quarter: 2006Q2

REPORT INFORMATION
  Report Type: 
  Country: None (occurrence: None)
  Receive Date: 20060609
  Receipt Date: 20060609
  Transmission Date: 20061013
  Serious: Yes (Other)
  Sender: FDA-Public Use
  Company Number: None

PATIENT
  Age: 44 Year
  Sex: Female
  Weight: 88.4514 kg

DRUGS (2)
  1. INTERFERON [Suspect]
     Indication: HEPATITIS C
     Dosage: 3XWEEK INTRAHEPATIC
     Route: 025
     Dates: start: 19960701, end: 19970301
  2. INTERFERON ALPHA A [Concomitant]

REACTIONS (18)
  - ANXIETY [None]
  - APPENDICECTOMY [None]
  - CARCINOID TUMOUR [None]
  - CONDITION AGGRAVATED [None]
  - DEPRESSION [None]
  - DYSPNOEA [None]
  - EAR DISORDER [None]
  - ENDOMETRIAL ABLATION [None]
  - HEADACHE [None]
  - IMPAIRED WORK ABILITY [None]
  - IRRITABILITY [None]
  - MUSCLE TWITCHING [None]
  - NEOPLASM MALIGNANT [None]
  - NERVOUSNESS [None]
  - PAIN IN EXTREMITY [None]
  - PANIC ATTACK [None]
  - TREMOR [None]
  - UTERINE POLYP [None]
